FAERS Safety Report 25963169 (Version 1)
Quarter: 2025Q4

REPORT INFORMATION
  Report Type: Spontaneous
  Country: EU (occurrence: EU)
  Receive Date: 20251027
  Receipt Date: 20251027
  Transmission Date: 20260118
  Serious: Yes (Death)
  Sender: UCB
  Company Number: None

PATIENT
  Age: 77 Year
  Weight: 82 kg

DRUGS (2)
  1. KEPPRA [Suspect]
     Active Substance: LEVETIRACETAM
     Indication: Epilepsy
     Dosage: 1000 MG MORNING AND EVENING, THEN 500 MG MORNING AND EVENING STARTING FROM 06/24/2025
  2. AMOXICILLIN [Suspect]
     Active Substance: AMOXICILLIN
     Indication: Epilepsy
     Dosage: 2 G THREE TIMES A DAY

REACTIONS (1)
  - Toxic encephalopathy [Fatal]
